FAERS Safety Report 7392568-0 (Version None)
Quarter: 2011Q2

REPORT INFORMATION
  Report Type: 
  Country: None (occurrence: None)
  Receive Date: 20110404
  Receipt Date: 20110325
  Transmission Date: 20111010
  Serious: Yes (Other)
  Sender: FDA-Public Use
  Company Number: US-ASTRAZENECA-2011SE01111

PATIENT
  Age: 85 Year
  Sex: Female

DRUGS (2)
  1. CRESTOR [Suspect]
     Route: 048
  2. PLAVIX [Concomitant]

REACTIONS (7)
  - CEREBROVASCULAR ACCIDENT [None]
  - MALAISE [None]
  - FALL [None]
  - ANKLE FRACTURE [None]
  - PNEUMONIA [None]
  - DIZZINESS [None]
  - HEADACHE [None]
